FAERS Safety Report 23295932 (Version 1)
Quarter: 2023Q4

REPORT INFORMATION
  Report Type: Spontaneous
  Country: US (occurrence: None)
  Receive Date: 20231213
  Receipt Date: 20231213
  Transmission Date: 20240110
  Serious: Yes (Hospitalization)
  Sender: FDA-Public Use
  Company Number: None

PATIENT
  Sex: Female

DRUGS (2)
  1. RASUVO [Suspect]
     Active Substance: METHOTREXATE SODIUM
     Indication: Rheumatoid arthritis
     Dosage: 20MG WEEKLY SC
     Route: 058
     Dates: start: 202310
  2. ACTEMRA ACTPEN [Concomitant]
     Active Substance: TOCILIZUMAB

REACTIONS (1)
  - Spinal fracture [None]
